FAERS Safety Report 9721998 (Version 3)
Quarter: 2014Q1

REPORT INFORMATION
  Report Type: Report from Study
  Country: CN (occurrence: CN)
  Receive Date: 20131202
  Receipt Date: 20140121
  Transmission Date: 20141002
  Serious: Yes (Hospitalization, Disabling)
  Sender: FDA-Public Use
  Company Number: CN-ROCHE-1309070

PATIENT
  Age: 69 Year
  Sex: Female
  Weight: 50 kg

DRUGS (41)
  1. OBINUTUZUMAB [Suspect]
     Indication: DIFFUSE LARGE B-CELL LYMPHOMA
     Dosage: DOSE CONCENTRATION OF LAST GA101 TAKEN WAS 4 MG/ML.?VOLUME OF LAST GA101 TAKEN WAS 250 ML?MOST RECEN
     Route: 042
     Dates: start: 20131107
  2. CYCLOPHOSPHAMIDE [Suspect]
     Indication: DIFFUSE LARGE B-CELL LYMPHOMA
     Dosage: DOSE CONCENTRATION OF LAST CYCLOPHOSPHAMIDE AKEN WAS 1087 MG?MOST RECENT DOSE OF CYCLOPHOSPHAMIDE PR
     Route: 042
     Dates: start: 20131108
  3. DOXORUBICIN [Suspect]
     Indication: DIFFUSE LARGE B-CELL LYMPHOMA
     Dosage: DOSE OF LAST  DOXORUBICIN TAKEN WAS 72.5 MG.?MOST RECENT DOSE OF DOXORUBICIN PRIOR TO SAE WAS ON 08/
     Route: 042
     Dates: start: 20131108
  4. VINCRISTINE [Suspect]
     Indication: DIFFUSE LARGE B-CELL LYMPHOMA
     Dosage: DOSE OF LAST VINCRISTINE TAKEN WAS 2 MG.?MOST RECENT DOSE OF VINCRISTINE PRIOR TO SAE WAS ON 08/NOV/
     Route: 041
     Dates: start: 20131108
  5. PREDNISONE [Suspect]
     Indication: DIFFUSE LARGE B-CELL LYMPHOMA
     Dosage: DOSE OF LAST PREDNISONE WAS 100 MG.?MOST RECENT DOSE OF PREDNISONE PRIOR TO SAE WAS 12/NOV/2013
     Route: 048
     Dates: start: 20131108
  6. INSULIN [Concomitant]
     Indication: HYPOGLYCAEMIA
     Route: 065
     Dates: start: 20131107, end: 20131111
  7. INSULIN [Concomitant]
     Route: 065
     Dates: start: 20131114, end: 20131122
  8. INSULIN [Concomitant]
     Route: 065
     Dates: start: 20131107, end: 20131107
  9. FUROSEMIDE [Concomitant]
     Route: 065
     Dates: start: 20131107, end: 20131109
  10. FUROSEMIDE [Concomitant]
     Route: 065
     Dates: start: 20131114, end: 20131115
  11. FUROSEMIDE [Concomitant]
     Route: 065
     Dates: start: 20131114, end: 20131114
  12. ALUMINUM MAGNESIUM CARBONATE [Concomitant]
     Route: 065
     Dates: start: 20131107, end: 20131122
  13. CALTRATE [Concomitant]
     Route: 065
     Dates: start: 20131108, end: 20131113
  14. POTASSIUM CHLORIDE [Concomitant]
     Route: 065
     Dates: start: 20131109, end: 20131111
  15. PANTOPRAZOLE [Concomitant]
     Route: 065
     Dates: start: 20131109, end: 20131111
  16. GLICLAZIDE [Concomitant]
     Indication: HYPOGLYCAEMIA
     Route: 065
     Dates: start: 20131111, end: 20131114
  17. ACARBOSE [Concomitant]
     Indication: HYPOGLYCAEMIA
     Route: 065
     Dates: start: 20131111, end: 20131114
  18. PALONOSETRON HYDROCHLORIDE [Concomitant]
     Indication: NAUSEA
     Route: 065
     Dates: start: 20131114, end: 20131115
  19. NIFEDIPINE [Concomitant]
     Indication: HYPERTENSION
     Route: 065
     Dates: start: 20131114, end: 20131122
  20. FILGRASTIM [Concomitant]
     Route: 065
     Dates: start: 20131116, end: 20131122
  21. ESOMEPRAZOLE [Concomitant]
     Route: 065
     Dates: start: 20131116, end: 20131122
  22. ITRACONAZOLE [Concomitant]
     Route: 065
     Dates: start: 20131119, end: 20131122
  23. LEVOFLOXACIN HYDROCHLORIDE [Concomitant]
     Route: 065
     Dates: start: 20131118, end: 20131121
  24. CEFOPERAZONE/SULBACTAM [Concomitant]
     Route: 065
     Dates: start: 20131118, end: 20131121
  25. ROTUNDINE [Concomitant]
     Indication: ANALGESIC THERAPY
     Route: 065
     Dates: start: 20131120, end: 20131122
  26. ACETAMINOPHEN [Concomitant]
     Indication: PROPHYLAXIS
     Route: 065
     Dates: start: 20131107, end: 20131107
  27. ACETAMINOPHEN [Concomitant]
     Route: 065
     Dates: start: 20131114, end: 20131114
  28. PROMETHAZINE [Concomitant]
     Indication: PROPHYLAXIS
     Route: 065
     Dates: start: 20131107, end: 20131107
  29. PROMETHAZINE [Concomitant]
     Route: 065
     Dates: start: 20131114, end: 20131114
  30. DEXAMETHASONE [Concomitant]
     Indication: PROPHYLAXIS
     Route: 065
     Dates: start: 20131107, end: 20131107
  31. DEXAMETHASONE [Concomitant]
     Route: 065
     Dates: start: 20131114, end: 20131114
  32. METHYLPREDNISOLONE SODIUM SUCCINATE [Concomitant]
     Indication: HYPERSENSITIVITY
     Route: 065
     Dates: start: 20131107, end: 20131107
  33. METOPROLOL TARTRATE [Concomitant]
     Indication: HYPERTENSION
     Route: 065
     Dates: start: 20131107, end: 20131107
  34. METOCLOPRAMIDE [Concomitant]
     Route: 065
     Dates: start: 20131109, end: 20131109
  35. PANTOPRAZOLE [Concomitant]
     Route: 065
     Dates: start: 20131114, end: 20131114
  36. CAPTOPRIL [Concomitant]
     Indication: HYPERTENSION
     Route: 065
     Dates: start: 20131114, end: 20131114
  37. MONTMORILLONITE [Concomitant]
     Route: 065
     Dates: start: 20131115, end: 20131115
  38. MONTMORILLONITE [Concomitant]
     Route: 065
     Dates: start: 20131118, end: 20131118
  39. DIFENIDOL HYDROCHLORIDE [Concomitant]
     Indication: NAUSEA
     Route: 065
     Dates: start: 20131117, end: 20131117
  40. FLUNARIZINE [Concomitant]
     Indication: HEADACHE
     Route: 065
     Dates: start: 20131119, end: 20131119
  41. PROMETHAZINE [Concomitant]
     Indication: SEDATION
     Route: 065
     Dates: start: 20131120, end: 20131120

REACTIONS (1)
  - Cerebrovascular accident [Recovered/Resolved with Sequelae]
